FAERS Safety Report 9748007 (Version 1)
Quarter: 2013Q4

REPORT INFORMATION
  Report Type: Spontaneous
  Country: US (occurrence: None)
  Receive Date: 20131206
  Receipt Date: 20131206
  Transmission Date: 20140711
  Serious: Yes (Hospitalization)
  Sender: FDA-Public Use
  Company Number: A1051805A

PATIENT
  Age: 82 Year
  Sex: Female

DRUGS (17)
  1. BIOTENE MOISTURIZING MOUTH SPRAY [Suspect]
     Indication: PRODUCT USED FOR UNKNOWN INDICATION
  2. ORAL MOISTURISERS [Suspect]
     Indication: PRODUCT USED FOR UNKNOWN INDICATION
  3. SODIUM FLUORIDE TOOTHPASTE (SODIUM FLUORIDE) [Suspect]
     Indication: PRODUCT USED FOR UNKNOWN INDICATION
  4. ORAL MOISTURISERS SPRAY [Suspect]
     Indication: PRODUCT USED FOR UNKNOWN INDICATION
  5. SODIUM FLUORIDE TOOTHPASTE (SODIUM FLUORIDE) [Suspect]
     Indication: PRODUCT USED FOR UNKNOWN INDICATION
  6. ORAL MOISTURISERS GUM [Suspect]
     Indication: DRY MOUTH
  7. OXYCODONE HYDROCHLORIDE [Concomitant]
  8. OXYCODONE [Concomitant]
  9. INDOMETHACIN [Concomitant]
  10. BENAZEPRIL [Concomitant]
  11. ASPIRIN [Concomitant]
  12. POTASSIUM SALT OF PORPHYRINIC COMPOUNDS [Concomitant]
  13. VITAMIN D [Concomitant]
  14. MAGNESIUM SALT [Concomitant]
  15. EZETMIBE [Concomitant]
  16. CLOPIDOGREL BISULPHATE [Concomitant]
  17. FRUSEMIDE [Concomitant]

REACTIONS (13)
  - Loss of consciousness [None]
  - Nausea [None]
  - Chest pain [None]
  - Peripheral arterial occlusive disease [None]
  - Oral discomfort [None]
  - Oral discomfort [None]
  - Cheilitis [None]
  - Lip blister [None]
  - Stomatitis [None]
  - Oral mucosal blistering [None]
  - Gingival inflammation [None]
  - Gingival blister [None]
  - Drug ineffective [None]
